FAERS Safety Report 20016755 (Version 1)
Quarter: 2021Q4

REPORT INFORMATION
  Report Type: Spontaneous
  Country: US (occurrence: None)
  Receive Date: 20211104
  Receipt Date: 20211104
  Transmission Date: 20220304
  Serious: No
  Sender: FDA-Public Use
  Company Number: None

PATIENT
  Age: 74 Year
  Sex: Female

DRUGS (1)
  1. ENBREL [Suspect]
     Active Substance: ETANERCEPT
     Dosage: OTHER QUANTITY : PEN;?OTHER FREQUENCY : OTHER;?
     Route: 058
     Dates: start: 202101

REACTIONS (3)
  - Pneumonia [None]
  - Memory impairment [None]
  - Product dose omission issue [None]

NARRATIVE: CASE EVENT DATE: 20211013
